FAERS Safety Report 7013745-4 (Version None)
Quarter: 2010Q3

REPORT INFORMATION
  Report Type: 
  Country: None (occurrence: None)
  Receive Date: 20100924
  Receipt Date: 20100914
  Transmission Date: 20110219
  Serious: No
  Sender: FDA-Public Use
  Company Number: US-PFIZER INC-2010116965

PATIENT
  Sex: Female
  Weight: 58.957 kg

DRUGS (3)
  1. XALATAN [Suspect]
     Indication: INTRAOCULAR PRESSURE INCREASED
     Dosage: ONE DROP IN EACH EYE
     Dates: start: 20100401
  2. LISINOPRIL [Concomitant]
     Dosage: 10 MG, UNK
  3. SYNTHROID [Concomitant]
     Indication: THYROID DISORDER
     Dosage: 0.15 MG, UNK

REACTIONS (1)
  - HAIR TEXTURE ABNORMAL [None]
